FAERS Safety Report 15451669 (Version 2)
Quarter: 2018Q4

REPORT INFORMATION
  Report Type: Spontaneous
  Country: IT (occurrence: IT)
  Receive Date: 20181001
  Receipt Date: 20181011
  Transmission Date: 20190204
  Serious: Yes (Hospitalization, Other)
  Sender: FDA-Public Use
  Company Number: IT-MYLANLABS-2017M1058381

PATIENT
  Age: 67 Year
  Sex: Male

DRUGS (4)
  1. DICLOFENAC [Suspect]
     Active Substance: DICLOFENAC
     Indication: ARTHRALGIA
  2. THIOCOLCHICOSIDE [Suspect]
     Active Substance: THIOCOLCHICOSIDE
     Indication: BONE PAIN
     Dosage: UNK
     Route: 030
  3. DICLOFENAC [Suspect]
     Active Substance: DICLOFENAC
     Indication: BONE PAIN
     Dosage: UNK
     Route: 030
  4. THIOCOLCHICOSIDE [Suspect]
     Active Substance: THIOCOLCHICOSIDE
     Indication: ARTHRALGIA

REACTIONS (6)
  - Troponin I increased [Unknown]
  - Tryptase increased [Unknown]
  - Anaphylactic reaction [Unknown]
  - Kounis syndrome [Unknown]
  - Urticaria [Unknown]
  - Erythema [Unknown]
